FAERS Safety Report 23315745 (Version 1)
Quarter: 2023Q4

REPORT INFORMATION
  Report Type: Spontaneous
  Country: US (occurrence: US)
  Receive Date: 20231219
  Receipt Date: 20231219
  Transmission Date: 20240109
  Serious: Yes (Hospitalization)
  Sender: FDA-Public Use
  Company Number: US-CARA THERAPEUTICS, INC.-2023-00304-US

PATIENT
  Age: 81 Year
  Sex: Female
  Weight: 72 kg

DRUGS (29)
  1. KORSUVA [Suspect]
     Active Substance: DIFELIKEFALIN ACETATE
     Indication: Pruritus
     Dosage: 35 MICROGRAM POST HEMODIALYSIS SESSIONS THREE TIMES A WEEK
     Dates: end: 20230925
  2. KORSUVA [Suspect]
     Active Substance: DIFELIKEFALIN ACETATE
     Indication: Chronic kidney disease
  3. TRAZODONE [Concomitant]
     Active Substance: TRAZODONE HYDROCHLORIDE
     Indication: Sleep disorder therapy
     Dosage: 100 MG QPM
  4. HYDROXYZINE [Concomitant]
     Active Substance: HYDROXYZINE HYDROCHLORIDE
     Indication: Pruritus
     Dosage: 25 MILLIGRAM, Q6HOURS
  5. NITROGLYCERIN [Concomitant]
     Active Substance: NITROGLYCERIN
     Indication: Chest pain
     Dosage: UNK, PRN
  6. ALBUTEROL SULFATE [Concomitant]
     Active Substance: ALBUTEROL SULFATE
     Indication: Wheezing
     Dosage: UNK, Q6HOURS PRN
  7. ASPIRIN [Concomitant]
     Active Substance: ASPIRIN
     Dosage: 81 MILLIGRAM, QD
  8. ATORVASTATIN [Concomitant]
     Active Substance: ATORVASTATIN
     Dosage: 80 MILLIGRAM, QPM
  9. BETAMETHASONE [Concomitant]
     Active Substance: BETAMETHASONE\BETAMETHASONE DIPROPIONATE
     Dosage: UNK, BID
     Route: 061
  10. CLOBETASOL PROPIONATE [Concomitant]
     Active Substance: CLOBETASOL PROPIONATE
     Dosage: UNK, BID
     Route: 061
  11. COENZYME Q10 [Concomitant]
     Active Substance: DIETARY SUPPLEMENT\UBIDECARENONE
     Dosage: 200 MILLIGRAM, QD
  12. CYMBALTA [Concomitant]
     Active Substance: DULOXETINE HYDROCHLORIDE
     Dosage: 60 MILLIGRAM, QD
  13. DOXEPIN [Concomitant]
     Active Substance: DOXEPIN
     Dosage: 10 MILLIGRAM, BID
  14. FELODIPINE [Concomitant]
     Active Substance: FELODIPINE
     Dosage: FELODIPINE EXTENDED RELEASE 10 MILLIGRAM, BID
  15. GABAPENTIN [Concomitant]
     Active Substance: GABAPENTIN
     Dosage: 100 MILLIGRAM, BID PRN
  16. GLIPIZIDE [Concomitant]
     Active Substance: GLIPIZIDE
     Indication: Diabetes mellitus
     Dosage: 10 MILLIGRAM, QD
  17. ISOSORBIDE MONONITRATE [Concomitant]
     Active Substance: ISOSORBIDE MONONITRATE
     Dosage: ISOSORBIDE MONONITRATE EXTENDED RELEASE 60 MG, BID
  18. KEPPRA [Concomitant]
     Active Substance: LEVETIRACETAM
     Dosage: 500 MILLIGRAM, BID
  19. LABETALOL [Concomitant]
     Active Substance: LABETALOL\LABETALOL HYDROCHLORIDE
     Dosage: 500 MILLIGRAM, TID
  20. LANTUS [Concomitant]
     Active Substance: INSULIN GLARGINE
     Dosage: 7 IU INTERNATIONAL UNIT(S), QD (BEFORE BREAKFAST)
     Route: 058
  21. LOKELMA [Concomitant]
     Active Substance: SODIUM ZIRCONIUM CYCLOSILICATE
     Dosage: 5 GRAM (5GRAM PACKET), QWK (EVERY SUNDAY)
     Route: 048
  22. LOSARTAN POTASSIUM [Concomitant]
     Active Substance: LOSARTAN POTASSIUM
     Dosage: 100 MILLIGRAM, QPM
  23. MINOXIDIL [Concomitant]
     Active Substance: MINOXIDIL
     Dosage: 10 MILLIGRAM, BID
  24. VITAMINS [Concomitant]
     Active Substance: VITAMINS
     Dosage: UNK, QD
  25. PREVIDENT 5000 BOOST [Concomitant]
     Indication: Dental disorder prophylaxis
     Dosage: USE SMALL AMOUNT TO BRUSH TEETH
     Route: 048
  26. PROBIOTICS NOS [Concomitant]
     Active Substance: PROBIOTICS NOS
     Dosage: UNK, QD
  27. OMEPRAZOLE [Concomitant]
     Active Substance: OMEPRAZOLE
     Dosage: 40 MILLIGRAM, QD
  28. CALCITRIOL [Concomitant]
     Active Substance: CALCITRIOL
     Dosage: 0.75 MICROGRAM, TIW (AT DIALYSIS)
  29. VENOFER [Concomitant]
     Active Substance: IRON SUCROSE
     Dosage: 50 MILLIGRAM, QWK (AT DIALYSIS)

REACTIONS (1)
  - Mental status changes [Recovering/Resolving]

NARRATIVE: CASE EVENT DATE: 20230920
